FAERS Safety Report 4312364-8 (Version None)
Quarter: 2004Q1

REPORT INFORMATION
  Report Type: 
  Country: None (occurrence: None)
  Receive Date: 20040303
  Receipt Date: 20040227
  Transmission Date: 20041129
  Serious: Yes (Other)
  Sender: FDA-Public Use
  Company Number: STA-AE-04-MTX-080

PATIENT
  Sex: Male

DRUGS (1)
  1. METHOTREXATE [Suspect]
     Indication: PSORIATIC ARTHROPATHY
     Dosage: 15 MG 1X PER 1 WK, ORAL
     Route: 048
     Dates: start: 20030626, end: 20040209

REACTIONS (5)
  - ABORTION SPONTANEOUS [None]
  - AMNIOTIC CAVITY DISORDER [None]
  - DRUG EXPOSURE DURING PREGNANCY [None]
  - FOETAL HEART RATE ABNORMAL [None]
  - PREGNANCY [None]
